FAERS Safety Report 6617058-1 (Version None)
Quarter: 2010Q1

REPORT INFORMATION
  Report Type: 
  Country: None (occurrence: None)
  Receive Date: 20100307
  Receipt Date: 20100225
  Transmission Date: 20100710
  Serious: Yes (Hospitalization)
  Sender: FDA-Public Use
  Company Number: US-ELI_LILLY_AND_COMPANY-US201002000971

PATIENT
  Sex: Female
  Weight: 85.714 kg

DRUGS (21)
  1. DOUBLE BLINDED THERAPY [Suspect]
     Indication: NEURALGIA
     Dosage: UNK, UNK
  2. DULOXETINE HYDROCHLORIDE [Suspect]
     Indication: NEURALGIA
     Dosage: 120 MG, EACH MORNING
     Route: 048
     Dates: start: 20100107
  3. MULTI-VITAMIN [Concomitant]
     Indication: GENERAL PHYSICAL CONDITION
     Dosage: 1 D/F, DAILY (1/D)
     Route: 048
     Dates: start: 19760101
  4. VITAMIN E [Concomitant]
     Indication: GENERAL PHYSICAL CONDITION
     Dosage: 400 IU, DAILY (1/D)
     Route: 048
     Dates: start: 19800101
  5. VITAMIN C [Concomitant]
     Indication: GENERAL PHYSICAL CONDITION
     Dosage: 500 MG, DAILY (1/D)
     Route: 048
     Dates: start: 19760101
  6. CALCIUM [Concomitant]
     Indication: GENERAL PHYSICAL CONDITION
     Dosage: 500 MG, DAILY (1/D)
     Route: 048
     Dates: start: 20080101
  7. VITAMIN B COMPLEX CAP [Concomitant]
     Indication: GENERAL PHYSICAL CONDITION
     Dosage: 1 D/F, DAILY (1/D)
     Route: 048
     Dates: start: 20080101
  8. FISH OIL [Concomitant]
     Indication: GENERAL PHYSICAL CONDITION
     Dosage: 1200 MG, DAILY (1/D)
     Route: 048
     Dates: start: 20080101
  9. MAGNESIUM [Concomitant]
     Indication: GENERAL PHYSICAL CONDITION
     Dosage: 150 MG, DAILY (1/D)
     Route: 048
     Dates: start: 20080101
  10. GABAPENTIN [Concomitant]
     Indication: MULTIPLE SCLEROSIS
     Dosage: 1600 D/F, 3/D
     Route: 048
     Dates: start: 20080101
  11. ATENOLOL [Concomitant]
     Indication: HYPERTENSION
     Dosage: 100 MG, DAILY (1/D)
     Route: 048
     Dates: start: 20060101, end: 20100125
  12. DIAZIDE [Concomitant]
     Indication: HYPERTENSION
     Dosage: UNK, DAILY (1/D)
     Route: 048
     Dates: start: 20090910
  13. SERTRALINE HCL [Concomitant]
     Indication: DEPRESSION
     Dosage: 100 MG, EACH MORNING
     Route: 048
     Dates: start: 20040101
  14. SERTRALINE HCL [Concomitant]
     Dosage: 50 MG, EACH EVENING
     Route: 048
     Dates: start: 20040101
  15. PRAVASTATIN [Concomitant]
     Indication: HYPERCHOLESTEROLAEMIA
     Dosage: 40 MG, DAILY (1/D)
     Route: 048
     Dates: start: 20090601
  16. LEVAQUIN [Concomitant]
     Indication: CHEMOTHERAPY
     Dosage: 500 MG, DAILY (1/D)
     Route: 048
     Dates: start: 20091111, end: 20091117
  17. LEVAQUIN [Concomitant]
     Dosage: 500 MG, DAILY (1/D)
     Route: 048
     Dates: start: 20091201, end: 20091208
  18. LEVAQUIN [Concomitant]
     Dosage: 500 MG, DAILY (1/D)
     Route: 048
     Dates: start: 20091221, end: 20091228
  19. LEVAQUIN [Concomitant]
     Dosage: 500 MG, DAILY (1/D)
     Route: 048
     Dates: start: 20100111, end: 20100118
  20. CYTOXAN [Concomitant]
     Indication: CHEMOTHERAPY
     Dosage: 1 D/F, OTHER
     Route: 042
     Dates: start: 20091108, end: 20100104
  21. BENADRYL [Concomitant]
     Indication: INSOMNIA
     Dosage: 1 D/F, AS NEEDED
     Route: 048
     Dates: start: 20091129

REACTIONS (1)
  - BRONCHOSPASM [None]
